FAERS Safety Report 25967906 (Version 1)
Quarter: 2025Q4

REPORT INFORMATION
  Report Type: Spontaneous
  Country: US (occurrence: US)
  Receive Date: 20251028
  Receipt Date: 20251028
  Transmission Date: 20260118
  Serious: No
  Sender: SUNOVION
  Company Number: US-SMPA-2025SPA012829

PATIENT
  Age: 68 Year
  Sex: Male

DRUGS (2)
  1. ORGOVYX [Suspect]
     Active Substance: RELUGOLIX
     Indication: Prostate cancer
     Dosage: 360 MG, TAKE THREE TABLETS (360MG) BY MOUTH ON THE FIRST DAY OF TREATMENT
     Route: 048
  2. ORGOVYX [Suspect]
     Active Substance: RELUGOLIX
     Dosage: 120MG/TAKE ONE TABLET (120 MG) BY MOUTH ONCE DAILY AROUND THE SAME TIME EACH DAY WITH OR WITHOUT FOOD
     Route: 048

REACTIONS (1)
  - Pollakiuria [Unknown]
